FAERS Safety Report 12049896 (Version 5)
Quarter: 2016Q2

REPORT INFORMATION
  Report Type: Spontaneous
  Country: US (occurrence: US)
  Receive Date: 20160208
  Receipt Date: 20160506
  Transmission Date: 20160815
  Serious: Yes (Hospitalization, Other)
  Sender: FDA-Public Use
  Company Number: US-PFIZER INC-2016063811

PATIENT
  Age: 38 Year
  Sex: Female
  Weight: 119.73 kg

DRUGS (31)
  1. METOPROLOL. [Concomitant]
     Active Substance: METOPROLOL
     Indication: HEART RATE IRREGULAR
     Dosage: 12.5 MG, 1X/DAY
     Dates: start: 2007
  2. METOPROLOL. [Concomitant]
     Active Substance: METOPROLOL
     Dosage: 12.5 MG, 2X/DAY
     Dates: start: 20081222
  3. FOLIC ACID. [Concomitant]
     Active Substance: FOLIC ACID
     Indication: CARDIAC DISORDER
     Dosage: 1 MG, 1X/DAY
     Dates: start: 2006
  4. VOLTAREN [Concomitant]
     Active Substance: DICLOFENAC SODIUM
     Indication: PAIN
     Dosage: 2-4 GRAMS, DAILY (USED 2-4X/DAY)
     Dates: start: 2013
  5. ZETIA [Concomitant]
     Active Substance: EZETIMIBE
     Indication: BLOOD CHOLESTEROL ABNORMAL
     Dosage: 10 MG, 1X/DAY (AT NIGHT)
     Dates: start: 20151221
  6. HYDROCODONE [Concomitant]
     Active Substance: HYDROCODONE
     Indication: PAIN
     Dosage: 5/325 MG, 1 TABLET EVERY 6 HOURS
  7. VITAMIN D3 [Concomitant]
     Active Substance: CHOLECALCIFEROL
     Indication: OSTEOPOROSIS
  8. VASOTEC [Concomitant]
     Active Substance: ENALAPRIL MALEATE
     Indication: HYPERTENSION
     Dosage: 10 MG, 2X/DAY
  9. FUROSEMIDE. [Concomitant]
     Active Substance: FUROSEMIDE
     Indication: NEPHROLITHIASIS
  10. OSCAL D [Concomitant]
     Active Substance: CALCIUM CARBONATE\CHOLECALCIFEROL
     Indication: OSTEOPOROSIS
     Dosage: 500 MG, DAILY
  11. LYRICA [Suspect]
     Active Substance: PREGABALIN
     Indication: NEUROPATHY PERIPHERAL
     Dosage: 50 MG, 5X/DAY
     Route: 048
  12. SUPER VITAMIN B COMPLEX [Concomitant]
     Indication: OSTEOPOROSIS
     Dosage: 1 TABLET, 1X/DAY
     Dates: start: 2015
  13. SUPER VITAMIN B COMPLEX [Concomitant]
     Indication: MUSCLE SPASMS
     Dosage: 5000 IU, UNK
  14. ENALAPRIL [Concomitant]
     Active Substance: ENALAPRIL
     Indication: HYPERTENSION
     Dosage: 10 MG, 2X/DAY
  15. FUROSEMIDE. [Concomitant]
     Active Substance: FUROSEMIDE
     Indication: RENAL LITHIASIS PROPHYLAXIS
     Dosage: 40 MG, 1X/DAY
     Dates: start: 1995
  16. CENTRUM SILVER [Concomitant]
     Active Substance: MINERALS\VITAMINS
     Dosage: 1 TABLET, 1X/DAY (EVERY MORNING)
  17. PRILOSEC [Concomitant]
     Active Substance: OMEPRAZOLE MAGNESIUM
     Indication: DYSPEPSIA
     Dosage: 20 MG, 1X/DAY
     Dates: start: 199601
  18. LIPITOR [Concomitant]
     Active Substance: ATORVASTATIN CALCIUM
     Indication: BLOOD CHOLESTEROL ABNORMAL
     Dosage: 40 MG, AT NIGHT
  19. VITAMIN D3 [Concomitant]
     Active Substance: CHOLECALCIFEROL
     Indication: BONE DISORDER
     Dosage: 5000 IU, 1X/DAY (EVERY MORNING)
     Dates: start: 2009
  20. ESTROVEN MAXIMUM STRENGTH + ENERGY [Concomitant]
     Indication: HOT FLUSH
     Dosage: 1 TABLET, 1X/DAY
     Dates: start: 2008
  21. FORTEO [Concomitant]
     Active Substance: TERIPARATIDE
     Dosage: UNK
     Dates: start: 200901
  22. HYDROCODONE [Concomitant]
     Active Substance: HYDROCODONE
     Indication: ARTHRITIS
     Dosage: 1 TABLET, 4X/DAY (7.5/325 MG, EVERY 6 HOURS)
  23. CALTRATE WITH VITAMIN D [Concomitant]
     Active Substance: CALCIUM CARBONATE\CHOLECALCIFEROL
     Dosage: 600 MG, 1X/DAY (MORNING)
  24. LYRICA [Suspect]
     Active Substance: PREGABALIN
     Dosage: 50 MG, 3X/DAY
     Route: 048
  25. STOOL SOFTENER [Concomitant]
     Active Substance: DOCUSATE CALCIUM
     Indication: CONSTIPATION
     Dosage: 200 MG, 1X/DAY
     Dates: start: 2007
  26. FOSAMAX [Concomitant]
     Active Substance: ALENDRONATE SODIUM
     Indication: BONE DISORDER
     Dosage: 70 MG, WEEKLY
     Dates: start: 2006
  27. KLOR-CON [Concomitant]
     Active Substance: POTASSIUM CHLORIDE
     Indication: BLOOD POTASSIUM ABNORMAL
     Dosage: 20 MEQ, 3X/DAY
  28. KLOR-CON [Concomitant]
     Active Substance: POTASSIUM CHLORIDE
     Indication: NEPHROLITHIASIS
  29. ASPIRIN. [Concomitant]
     Active Substance: ASPIRIN
     Indication: CARDIAC DISORDER
     Dosage: 81 MG, 1X/DAY (MORNING)
     Dates: start: 1995
  30. FOSAMAX [Concomitant]
     Active Substance: ALENDRONATE SODIUM
     Indication: OSTEOPOROSIS
  31. PREMARIN [Concomitant]
     Active Substance: ESTROGENS, CONJUGATED

REACTIONS (24)
  - Gas poisoning [Recovered/Resolved]
  - Cataract [Recovered/Resolved]
  - Ingrowing nail [Recovered/Resolved]
  - Large intestine polyp [Recovered/Resolved]
  - Femur fracture [Recovered/Resolved]
  - Femur fracture [Recovered/Resolved]
  - Brain neoplasm [Recovered/Resolved]
  - Trigger finger [Recovered/Resolved]
  - Stress [Recovered/Resolved]
  - Dyspepsia [Recovered/Resolved]
  - Dry eye [Recovered/Resolved]
  - Weight increased [Recovered/Resolved]
  - Arthritis [Recovered/Resolved]
  - Cardiac disorder [Recovered/Resolved]
  - Granulomatous liver disease [Recovered/Resolved]
  - Bone neoplasm [Recovered/Resolved]
  - Product use issue [Recovered/Resolved]
  - Heart rate irregular [Not Recovered/Not Resolved]
  - Joint range of motion decreased [Recovered/Resolved]
  - Abasia [Recovered/Resolved]
  - Nephrolithiasis [Recovered/Resolved]
  - Exostosis [Recovered/Resolved]
  - Blood calcium increased [Recovered/Resolved]
  - Hot flush [Not Recovered/Not Resolved]

NARRATIVE: CASE EVENT DATE: 198910
